FAERS Safety Report 12199624 (Version 3)
Quarter: 2016Q2

REPORT INFORMATION
  Report Type: Spontaneous
  Country: DK (occurrence: DK)
  Receive Date: 20160322
  Receipt Date: 20160427
  Transmission Date: 20160815
  Serious: Yes (Hospitalization, Disabling, Other)
  Sender: FDA-Public Use
  Company Number: DK-PFIZER INC-2016162844

PATIENT
  Age: 65 Year
  Sex: Female

DRUGS (2)
  1. IBUPROFEN. [Suspect]
     Active Substance: IBUPROFEN
     Indication: ARTHRALGIA
     Dosage: UNK
     Route: 065
     Dates: start: 20121128
  2. PANTOLOC [Suspect]
     Active Substance: PANTOPRAZOLE SODIUM
     Indication: ANTACID THERAPY
     Dosage: UNK
     Route: 065

REACTIONS (8)
  - Gastrointestinal necrosis [Recovered/Resolved]
  - Gastric perforation [Not Recovered/Not Resolved]
  - Abdominal pain [Recovered/Resolved]
  - Splenic injury [Not Recovered/Not Resolved]
  - Sepsis [Recovered/Resolved]
  - Flatulence [Recovered/Resolved]
  - Abdominal abscess [Recovered/Resolved]
  - Gastrointestinal stenosis [Unknown]

NARRATIVE: CASE EVENT DATE: 2013
